FAERS Safety Report 11858063 (Version 3)
Quarter: 2016Q1

REPORT INFORMATION
  Report Type: Spontaneous
  Country: ES (occurrence: ES)
  Receive Date: 20151222
  Receipt Date: 20160208
  Transmission Date: 20160526
  Serious: Yes (Other)
  Sender: FDA-Public Use
  Company Number: ES-ABBVIE-15P-144-1524389-00

PATIENT
  Age: 49 Year
  Sex: Female

DRUGS (3)
  1. CLOTIAPINE [Concomitant]
     Active Substance: CLOTHIAPINE
     Indication: INSOMNIA
     Route: 065
  2. VALPROIC ACID. [Suspect]
     Active Substance: VALPROIC ACID
     Indication: BIPOLAR I DISORDER
     Route: 065
  3. VALPROIC ACID. [Suspect]
     Active Substance: VALPROIC ACID
     Route: 065

REACTIONS (7)
  - Rash erythematous [Recovering/Resolving]
  - Skin burning sensation [Unknown]
  - Drug reaction with eosinophilia and systemic symptoms [Recovering/Resolving]
  - Purpura [Unknown]
  - Rash maculo-papular [Recovering/Resolving]
  - Pyrexia [Recovered/Resolved]
  - Oropharyngeal discomfort [Recovering/Resolving]
